FAERS Safety Report 5066444-2 (Version None)
Quarter: 2006Q3

REPORT INFORMATION
  Report Type: 
  Country: None (occurrence: None)
  Receive Date: 20060801
  Receipt Date: 20060725
  Transmission Date: 20061208
  Serious: Yes (Disabling)
  Sender: FDA-Public Use
  Company Number: FR-AVENTIS-200612599FR

PATIENT
  Age: 44 Year
  Sex: Male

DRUGS (2)
  1. OFLOCET [Suspect]
     Indication: EMBOLISM
     Route: 048
     Dates: start: 20060213, end: 20060513
  2. RIFADIN [Suspect]
     Indication: EMBOLISM
     Route: 048
     Dates: start: 20060213, end: 20060513

REACTIONS (2)
  - ARTHRALGIA [None]
  - TENDONITIS [None]
